FAERS Safety Report 10636696 (Version 3)
Quarter: 2017Q1

REPORT INFORMATION
  Report Type: Report from Study
  Country: US (occurrence: US)
  Receive Date: 20141208
  Receipt Date: 20170223
  Transmission Date: 20170428
  Serious: Yes (Other)
  Sender: FDA-Public Use
  Company Number: US-ROCHE-1416395

PATIENT

DRUGS (3)
  1. ERIBULIN MESYLATE [Suspect]
     Active Substance: ERIBULIN MESYLATE
     Indication: HER-2 POSITIVE BREAST CANCER
     Dosage: DAY 1 AND 8 OF EACH 21-DAY CYCLE
     Route: 042
  2. TRASTUZUMAB [Suspect]
     Active Substance: TRASTUZUMAB
     Indication: HER-2 POSITIVE BREAST CANCER
     Dosage: ON DAY 1 OF FIRST CYCLE
     Route: 042
  3. TRASTUZUMAB [Suspect]
     Active Substance: TRASTUZUMAB
     Dosage: ON DAY 1 FROM CYCLE 2
     Route: 042

REACTIONS (20)
  - Febrile neutropenia [Unknown]
  - Anaemia [Unknown]
  - Dyspepsia [Unknown]
  - Blood calcium increased [Unknown]
  - Blood phosphorus increased [Unknown]
  - Neuropathy peripheral [Unknown]
  - Chills [Unknown]
  - Alanine aminotransferase increased [Unknown]
  - Alopecia [Unknown]
  - Neutropenia [Unknown]
  - Fatigue [Unknown]
  - Leukopenia [Unknown]
  - Urinary tract infection [Unknown]
  - Blood sodium increased [Unknown]
  - Pyrexia [Unknown]
  - Vomiting [Unknown]
  - Diarrhoea [Unknown]
  - Headache [Unknown]
  - Blood potassium increased [Unknown]
  - Nausea [Unknown]
